FAERS Safety Report 6266159-9 (Version None)
Quarter: 2009Q3

REPORT INFORMATION
  Report Type: 
  Country: None (occurrence: None)
  Receive Date: 20090713
  Receipt Date: 20090629
  Transmission Date: 20100115
  Serious: Yes (Life-Threatening)
  Sender: FDA-Public Use
  Company Number: US-MYLANLABS-2009S1011524

PATIENT
  Age: 68 Year
  Sex: Female

DRUGS (4)
  1. FLUOROURACIL [Suspect]
     Indication: BREAST CANCER STAGE I
  2. EPIRUBICIN [Suspect]
     Indication: BREAST CANCER STAGE I
  3. CYCLOPHOSPHAMIDE [Suspect]
     Indication: BREAST CANCER STAGE I
  4. TAMOXIFEN CITRATE [Suspect]
     Indication: BREAST CANCER STAGE I

REACTIONS (1)
  - ACUTE MYELOID LEUKAEMIA [None]
